FAERS Safety Report 9445162 (Version 1)
Quarter: 2013Q3

REPORT INFORMATION
  Report Type: Spontaneous
  Country: GB (occurrence: GB)
  Receive Date: 20130807
  Receipt Date: 20130807
  Transmission Date: 20140515
  Serious: Yes (Hospitalization)
  Sender: FDA-Public Use
  Company Number: GB-WATSON-2013-13784

PATIENT
  Age: 5 Year
  Sex: Female

DRUGS (4)
  1. PREDNISOLONE (UNKNOWN) [Suspect]
     Indication: MULTICENTRIC RETICULOHISTIOCYTOSIS
     Dosage: 15 MG, DAILY
     Dates: start: 20130625
  2. PREDNISOLONE (UNKNOWN) [Suspect]
     Dosage: 10 MG, DAILY
     Route: 048
  3. PREDNISOLONE (UNKNOWN) [Suspect]
     Dosage: 5 MG, DAILY
     Route: 048
  4. METHOTREXATE [Concomitant]
     Indication: JUVENILE IDIOPATHIC ARTHRITIS
     Dosage: 1 DF, UNK, ONE WEEK
     Dates: end: 201305

REACTIONS (2)
  - Abdominal pain [Unknown]
  - Headache [Unknown]
